FAERS Safety Report 4717002-8 (Version None)
Quarter: 2005Q3

REPORT INFORMATION
  Report Type: 
  Country: None (occurrence: None)
  Receive Date: 20050715
  Receipt Date: 20050711
  Transmission Date: 20060218
  Serious: Yes (Disabling)
  Sender: FDA-Public Use
  Company Number: GBWYE738513JUN05

PATIENT
  Age: 30 Year
  Sex: Male

DRUGS (3)
  1. EFFEXOR [Suspect]
     Indication: DEPRESSION
     Dosage: 75 MG TWO TIMES PER DAY; 37.5 MG 1X PER 1 DAY
     Route: 048
     Dates: start: 20020521, end: 20040902
  2. EFFEXOR [Suspect]
     Indication: DEPRESSION
     Dosage: 75 MG TWO TIMES PER DAY; 37.5 MG 1X PER 1 DAY
     Route: 048
     Dates: start: 20050104
  3. BETAHISTINE (BETAHISTINE) [Concomitant]

REACTIONS (2)
  - CEREBELLAR ATAXIA [None]
  - DYSARTHRIA [None]
